FAERS Safety Report 17914776 (Version 1)
Quarter: 2020Q2

REPORT INFORMATION
  Report Type: Spontaneous
  Country: NL (occurrence: NL)
  Receive Date: 20200618
  Receipt Date: 20200618
  Transmission Date: 20200714
  Serious: Yes (Other)
  Sender: FDA-Public Use
  Company Number: NVSC2020NL095683

PATIENT
  Sex: Male
  Weight: 76 kg

DRUGS (2)
  1. AZITROMYCINE 200 MG/5 ML, POEDER VOOR ORALE SUSPENSIE [Suspect]
     Active Substance: AZITHROMYCIN
     Indication: ARTHROPOD BITE
     Dosage: 1 DF, QD (1 BOTTLE)
     Route: 048
  2. AZITHROMYCIN/TEVA [Concomitant]
     Active Substance: AZITHROMYCIN
     Indication: ARTHROPOD BITE
     Dosage: 1 DF, QD (1 BOTTLE)
     Route: 048

REACTIONS (6)
  - Diarrhoea [Recovered/Resolved]
  - Product taste abnormal [Recovered/Resolved]
  - Gastric hypermotility [Recovered/Resolved]
  - Diarrhoea haemorrhagic [Recovered/Resolved]
  - Vomiting [Recovered/Resolved]
  - Product use in unapproved indication [Unknown]
